FAERS Safety Report 6571771-3 (Version None)
Quarter: 2010Q1

REPORT INFORMATION
  Report Type: 
  Country: None (occurrence: None)
  Receive Date: 20100205
  Receipt Date: 20100125
  Transmission Date: 20100710
  Serious: Yes (Hospitalization)
  Sender: FDA-Public Use
  Company Number: US-JNJFOC-20091206284

PATIENT
  Sex: Male

DRUGS (4)
  1. NUCYNTA [Suspect]
     Indication: PAIN
     Route: 048
  2. WELLBUTRIN [Concomitant]
     Indication: DEPRESSION
  3. PRISTIQ [Concomitant]
     Indication: DEPRESSION
  4. XANAX [Concomitant]
     Indication: ANXIETY

REACTIONS (2)
  - DIARRHOEA [None]
  - MELAENA [None]
